FAERS Safety Report 8472263-7 (Version None)
Quarter: 2012Q2

REPORT INFORMATION
  Report Type: 
  Country: None (occurrence: None)
  Receive Date: 20120627
  Receipt Date: 20120622
  Transmission Date: 20120825
  Serious: Yes (Other)
  Sender: FDA-Public Use
  Company Number: PHHY2012AU054202

PATIENT
  Sex: Male

DRUGS (1)
  1. CLOZARIL [Suspect]
     Route: 048
     Dates: start: 20091023

REACTIONS (2)
  - BUNDLE BRANCH BLOCK LEFT [None]
  - QRS AXIS ABNORMAL [None]
